FAERS Safety Report 20238422 (Version 3)
Quarter: 2022Q4

REPORT INFORMATION
  Report Type: Report from Study
  Country: BR (occurrence: BR)
  Receive Date: 20211228
  Receipt Date: 20221023
  Transmission Date: 20230112
  Serious: Yes (Hospitalization, Other)
  Sender: FDA-Public Use
  Company Number: BR-JNJFOC-20211249407

PATIENT
  Age: 33 Year
  Sex: Male
  Weight: 92 kg

DRUGS (2)
  1. INFLIXIMAB [Suspect]
     Active Substance: INFLIXIMAB
     Indication: Ankylosing spondylitis
     Dosage: 5 VIALS, EVERY 8 WEEKS
     Route: 041
     Dates: start: 20171010, end: 202101
  2. REMICADE [Suspect]
     Active Substance: INFLIXIMAB
     Indication: Ankylosing spondylitis
     Dosage: 5 VIALS EVERY 8 WEEKS
     Route: 041
     Dates: start: 20171010, end: 202201

REACTIONS (4)
  - Pulmonary oedema [Recovered/Resolved]
  - Tuberculosis [Recovered/Resolved]
  - COVID-19 [Recovered/Resolved]
  - Crohn^s disease [Unknown]

NARRATIVE: CASE EVENT DATE: 20210101
